FAERS Safety Report 8096237-3 (Version None)
Quarter: 2012Q1

REPORT INFORMATION
  Report Type: 
  Country: None (occurrence: None)
  Receive Date: 20120129
  Receipt Date: 20111220
  Transmission Date: 20120608
  Serious: No
  Sender: FDA-Public Use
  Company Number: US-ABBOTT-11P-163-0885721-00

PATIENT
  Sex: Female
  Weight: 90.8 kg

DRUGS (11)
  1. CYMBALTA [Concomitant]
     Indication: DEPRESSION
  2. PLAQUENIL [Concomitant]
     Indication: RHEUMATOID ARTHRITIS
  3. HYDROCODONE BITARTRATE [Concomitant]
     Indication: PAIN
  4. MORPHINE [Concomitant]
     Indication: PAIN
  5. CELEBREX [Concomitant]
     Indication: PAIN
  6. LISINOPRIL [Concomitant]
     Indication: HYPERTENSION
  7. FOLIC ACID [Concomitant]
     Indication: RHEUMATOID ARTHRITIS
  8. METHOTREXATE [Concomitant]
     Indication: RHEUMATOID ARTHRITIS
  9. HUMIRA [Suspect]
     Dates: start: 20111215
  10. HUMIRA [Suspect]
     Indication: RHEUMATOID ARTHRITIS
     Dates: start: 20110101, end: 20111208
  11. PREDNISONE TAB [Concomitant]
     Indication: RHEUMATOID ARTHRITIS

REACTIONS (3)
  - ARTHRALGIA [None]
  - DRUG INEFFECTIVE [None]
  - NASOPHARYNGITIS [None]
